FAERS Safety Report 9114267 (Version 1)
Quarter: 2013Q1

REPORT INFORMATION
  Report Type: Spontaneous
  Country: JP (occurrence: JP)
  Receive Date: 20130208
  Receipt Date: 20130208
  Transmission Date: 20140127
  Serious: Yes (Other)
  Sender: FDA-Public Use
  Company Number: JP-NAPPMUNDI-DEU-2012-0009810

PATIENT
  Age: 64 Year
  Sex: Female

DRUGS (3)
  1. OXYCODONE HCL PR TABLET [Suspect]
     Indication: PRODUCT USED FOR UNKNOWN INDICATION
     Dosage: 30 MG, DAILY
     Route: 048
  2. OXYCODONE HCL PR TABLET [Suspect]
     Dosage: 20 MG, DAILY
     Route: 048
  3. OXYCODONE HCL PR TABLET [Suspect]
     Dosage: 20 MG, DAILY
     Route: 048

REACTIONS (2)
  - Delirium [Recovering/Resolving]
  - Hallucination [Recovering/Resolving]
